FAERS Safety Report 9301845 (Version 2)
Quarter: 2013Q3

REPORT INFORMATION
  Report Type: Spontaneous
  Country: NO (occurrence: NO)
  Receive Date: 20130521
  Receipt Date: 20130729
  Transmission Date: 20140515
  Serious: Yes (Death)
  Sender: FDA-Public Use
  Company Number: NO-WATSON-2013-08510

PATIENT
  Age: 64 Year
  Sex: Female

DRUGS (2)
  1. GEMCITABINE (UNKNOWN) [Suspect]
     Indication: PANCREATIC CARCINOMA
     Dosage: 1000 MG, UNKNOWN
     Route: 042
     Dates: start: 20100916, end: 20110407
  2. VENTOLINE                          /00139501/ [Concomitant]
     Indication: PRODUCT USED FOR UNKNOWN INDICATION
     Dosage: UNK, UNKNOWN
     Route: 065

REACTIONS (8)
  - Capillary leak syndrome [Fatal]
  - Acidosis [Fatal]
  - Oedema [Fatal]
  - Pleural effusion [Fatal]
  - Pulmonary hypertension [Fatal]
  - Left ventricular failure [Fatal]
  - Renal failure [Fatal]
  - Cardiac failure [Fatal]
